FAERS Safety Report 5441876-9 (Version None)
Quarter: 2007Q3

REPORT INFORMATION
  Report Type: 
  Country: None (occurrence: None)
  Receive Date: 20070830
  Receipt Date: 20070830
  Transmission Date: 20080115
  Serious: Yes (Death, Hospitalization)
  Sender: FDA-Public Use
  Company Number: None

PATIENT
  Sex: Female
  Weight: 56.5 kg

DRUGS (5)
  1. CYCLOPHOSPHAMIDE [Suspect]
     Dosage: 790 MG
     Dates: end: 20070808
  2. TAXOTERE [Suspect]
     Dosage: 95 MG
     Dates: end: 20070808
  3. DOXORUBICIN HYDROCHLORIDE [Suspect]
     Dosage: 80 MG
     Dates: end: 20070808
  4. DECADRON [Concomitant]
  5. NEULASTA [Concomitant]

REACTIONS (10)
  - BRONCHIAL DISORDER [None]
  - DYSPNOEA [None]
  - FLANK PAIN [None]
  - HAEMOPTYSIS [None]
  - HYPOXIA [None]
  - LEUKOCYTOSIS [None]
  - LOBAR PNEUMONIA [None]
  - OEDEMA PERIPHERAL [None]
  - RESPIRATORY DISTRESS [None]
  - RHONCHI [None]
